FAERS Safety Report 5546618-4 (Version None)
Quarter: 2007Q4

REPORT INFORMATION
  Report Type: 
  Country: None (occurrence: None)
  Receive Date: 20071123
  Receipt Date: 20061201
  Transmission Date: 20080405
  Serious: Yes (Other)
  Sender: FDA-Public Use
  Company Number: US-JNJFOC-20061200325

PATIENT
  Age: 35 Year
  Sex: Female
  Weight: 58.514 kg

DRUGS (5)
  1. LEVAQUIN [Suspect]
     Indication: URINARY TRACT INFECTION
     Dosage: 500 MG, 3 IN 1 DAY,
     Dates: start: 20061130, end: 20061130
  2. PREVACID [Concomitant]
  3. ZELNORM (TEGASEROD) UNSPECIFIED [Concomitant]
  4. CLARINEX (DESLORATADINE) UNSPECIFIED [Concomitant]
  5. TOPROL (METOPROLOL SUCCINATE) UNSPECIFIED [Concomitant]

REACTIONS (1)
  - HYPERSENSITIVITY [None]
